FAERS Safety Report 7347882-1 (Version None)
Quarter: 2011Q1

REPORT INFORMATION
  Report Type: 
  Country: None (occurrence: None)
  Receive Date: 20110311
  Receipt Date: 20110307
  Transmission Date: 20110831
  Serious: Yes (Death)
  Sender: FDA-Public Use
  Company Number: US-JNJFOC-20110303466

PATIENT
  Sex: Male
  Weight: 66.23 kg

DRUGS (6)
  1. WELLBUTRIN [Concomitant]
  2. NEXIUM [Concomitant]
  3. VECTICAL [Concomitant]
  4. STELARA [Suspect]
     Indication: ILL-DEFINED DISORDER
     Route: 058
  5. LIALDA [Concomitant]
  6. LYRICA [Concomitant]

REACTIONS (1)
  - DEATH [None]
